FAERS Safety Report 7434255-6 (Version None)
Quarter: 2011Q2

REPORT INFORMATION
  Report Type: 
  Country: None (occurrence: None)
  Receive Date: 20110425
  Receipt Date: 20110419
  Transmission Date: 20111010
  Serious: No
  Sender: FDA-Public Use
  Company Number: US-PFIZER INC-2011086144

PATIENT
  Sex: Female

DRUGS (5)
  1. ATENOLOL [Concomitant]
     Dosage: UNK
  2. LIPITOR [Suspect]
     Dosage: UNK
  3. CRESTOR [Suspect]
     Dosage: UNK
  4. ACETYLSALICYLIC ACID [Concomitant]
     Dosage: UNK
  5. ALENDRONATE SODIUM [Suspect]
     Indication: OSTEOPOROSIS
     Dosage: 70 MG, WEEKLY
     Route: 048
     Dates: start: 20101001

REACTIONS (3)
  - MUSCLE SPASMS [None]
  - BALANCE DISORDER [None]
  - PAIN IN EXTREMITY [None]
